FAERS Safety Report 9396852 (Version 2)
Quarter: 2014Q2

REPORT INFORMATION
  Report Type: Spontaneous
  Country: ZA (occurrence: ZA)
  Receive Date: 20130712
  Receipt Date: 20140501
  Transmission Date: 20141212
  Serious: Yes (Other)
  Sender: FDA-Public Use
  Company Number: ZA-ROCHE-1216074

PATIENT
  Age: 40 Year
  Sex: Female

DRUGS (6)
  1. ACTEMRA [Suspect]
     Indication: RHEUMATOID ARTHRITIS
     Route: 065
     Dates: start: 201303
  2. METHOTREXATE [Concomitant]
     Route: 065
  3. WARFARIN [Concomitant]
  4. DISPRIN [Concomitant]
     Dosage: LOW DOSE
     Route: 065
  5. CELEBREX [Concomitant]
     Route: 065
  6. ASPAVOR [Concomitant]
     Route: 065

REACTIONS (14)
  - Headache [Unknown]
  - Dizziness [Unknown]
  - Abdominal pain [Unknown]
  - Gingival bleeding [Unknown]
  - Alanine aminotransferase abnormal [Unknown]
  - C-reactive protein decreased [Unknown]
  - Arthralgia [Unknown]
  - Muscle strain [Unknown]
  - Dry mouth [Unknown]
  - Weight increased [Unknown]
  - Upper respiratory tract inflammation [Unknown]
  - Diarrhoea [Unknown]
  - Upper respiratory tract infection [Unknown]
  - Lower respiratory tract infection [Unknown]
